FAERS Safety Report 6760032-5 (Version None)
Quarter: 2010Q2

REPORT INFORMATION
  Report Type: 
  Country: None (occurrence: None)
  Receive Date: 20100608
  Receipt Date: 20100526
  Transmission Date: 20101027
  Serious: Yes (Other)
  Sender: FDA-Public Use
  Company Number: PHHY2010US34450

PATIENT
  Age: 55 Year
  Sex: Male

DRUGS (2)
  1. GLEEVEC [Suspect]
     Indication: CHRONIC MYELOID LEUKAEMIA
     Dosage: 400 MG /DAY
     Route: 048
  2. GLEEVEC [Suspect]
     Dosage: 200 MG, QD

REACTIONS (3)
  - CHRONIC MYELOID LEUKAEMIA [None]
  - DRUG INTOLERANCE [None]
  - NO THERAPEUTIC RESPONSE [None]
